FAERS Safety Report 6578341-1 (Version None)
Quarter: 2010Q1

REPORT INFORMATION
  Report Type: 
  Country: None (occurrence: None)
  Receive Date: 20100211
  Receipt Date: 20100128
  Transmission Date: 20100710
  Serious: Yes (Other)
  Sender: FDA-Public Use
  Company Number: JP-ROCHE-683696

PATIENT
  Sex: Female
  Weight: 45 kg

DRUGS (18)
  1. ACTEMRA [Suspect]
     Indication: RHEUMATOID ARTHRITIS
     Route: 041
     Dates: start: 20080611, end: 20080611
  2. ACTEMRA [Suspect]
     Route: 041
     Dates: start: 20080710, end: 20080710
  3. ACTEMRA [Suspect]
     Route: 041
     Dates: start: 20080806, end: 20080806
  4. ACTEMRA [Suspect]
     Route: 041
     Dates: start: 20080902, end: 20080902
  5. ACTEMRA [Suspect]
     Route: 041
     Dates: start: 20081002, end: 20081002
  6. ACTEMRA [Suspect]
     Route: 041
     Dates: start: 20081030, end: 20081030
  7. ACTEMRA [Suspect]
     Route: 041
     Dates: start: 20081126, end: 20081126
  8. ACTEMRA [Suspect]
     Route: 041
     Dates: start: 20081204, end: 20081204
  9. ACTEMRA [Suspect]
     Route: 041
     Dates: start: 20100121, end: 20100121
  10. METHOTREXATE [Suspect]
     Indication: RHEUMATOID ARTHRITIS
     Route: 048
     Dates: end: 20081101
  11. METHOTREXATE [Suspect]
     Route: 048
     Dates: start: 20081127
  12. PREDNISOLONE [Concomitant]
     Route: 048
     Dates: end: 20090219
  13. PREDNISOLONE [Concomitant]
     Route: 048
     Dates: start: 20090220, end: 20090317
  14. PREDNISOLONE [Concomitant]
     Route: 048
     Dates: end: 20090318
  15. LOXONIN [Concomitant]
     Route: 048
  16. MUCOSTA [Concomitant]
     Route: 048
  17. FOSAMAX [Concomitant]
     Dosage: DRUG: FOSAMAC 35 MG
     Route: 048
  18. FOLIAMIN [Concomitant]
     Route: 048

REACTIONS (1)
  - LYMPHOPROLIFERATIVE DISORDER [None]
